FAERS Safety Report 5450382-7 (Version None)
Quarter: 2007Q3

REPORT INFORMATION
  Report Type: 
  Country: None (occurrence: None)
  Receive Date: 20070912
  Receipt Date: 20070911
  Transmission Date: 20080115
  Serious: Yes (Life-Threatening)
  Sender: FDA-Public Use
  Company Number: CA-ASTRAZENECA-2007UW20903

PATIENT
  Age: 49 Year
  Sex: Female

DRUGS (2)
  1. SYMBICORT [Suspect]
     Indication: ASTHMA
     Route: 055
     Dates: end: 20070904
  2. SYMBICORT [Suspect]
     Route: 055
     Dates: end: 20070904

REACTIONS (1)
  - MYOCARDIAL INFARCTION [None]
